FAERS Safety Report 5062042-5 (Version None)
Quarter: 2006Q3

REPORT INFORMATION
  Report Type: 
  Country: None (occurrence: None)
  Receive Date: 20060726
  Receipt Date: 20060717
  Transmission Date: 20061208
  Serious: Yes (Hospitalization)
  Sender: FDA-Public Use
  Company Number: PHEH2006US09142

PATIENT
  Age: 51 Year
  Sex: Male
  Weight: 77.097 kg

DRUGS (3)
  1. ZOMETA [Suspect]
     Dosage: 4 MG MONTHLY
  2. PREDNISONE [Concomitant]
  3. FENTANYL [Concomitant]
     Route: 062

REACTIONS (4)
  - ABDOMINAL PAIN [None]
  - BLOOD AMYLASE INCREASED [None]
  - LIPASE INCREASED [None]
  - PANCREATITIS [None]
